FAERS Safety Report 8916187 (Version 3)
Quarter: 2013Q1

REPORT INFORMATION
  Report Type: Spontaneous
  Country: US (occurrence: US)
  Receive Date: 20121120
  Receipt Date: 20130220
  Transmission Date: 20140127
  Serious: Yes (Hospitalization)
  Sender: FDA-Public Use
  Company Number: US-GLAXOSMITHKLINE-A1002534A

PATIENT
  Age: 39 Year
  Sex: Female
  Weight: 76.1 kg

DRUGS (9)
  1. ARIXTRA [Suspect]
     Indication: COAGULOPATHY
     Dosage: 7.5MG UNKNOWN
     Route: 065
     Dates: start: 20121026
  2. COUMADIN [Suspect]
     Indication: COAGULOPATHY
     Dates: end: 20121023
  3. CELEXA [Concomitant]
     Indication: DEPRESSION
     Dosage: 40MG PER DAY
     Route: 048
  4. MVI [Concomitant]
     Indication: SUPPLEMENTATION THERAPY
     Route: 048
  5. ASA [Concomitant]
     Dosage: 81MG PER DAY
     Route: 048
  6. NORCO [Concomitant]
     Indication: PAIN
  7. HEPARIN DRIP [Concomitant]
     Dosage: 1000UNIT SEE DOSAGE TEXT
  8. VITAMIN K [Concomitant]
     Route: 048
  9. VENOFER [Concomitant]

REACTIONS (6)
  - Transient ischaemic attack [Recovering/Resolving]
  - Vaginal haemorrhage [Recovering/Resolving]
  - Endometrial ablation [Recovering/Resolving]
  - Hysterectomy [Recovering/Resolving]
  - Menorrhagia [Recovering/Resolving]
  - Uterine dilation and curettage [Recovering/Resolving]
